FAERS Safety Report 5765556-5 (Version None)
Quarter: 2008Q2

REPORT INFORMATION
  Report Type: 
  Country: None (occurrence: None)
  Receive Date: 20080611
  Receipt Date: 20080609
  Transmission Date: 20081010
  Serious: Yes (Hospitalization)
  Sender: FDA-Public Use
  Company Number: DE-BRISTOL-MYERS SQUIBB COMPANY-14221204

PATIENT
  Age: 50 Year
  Sex: Female
  Weight: 73 kg

DRUGS (8)
  1. CYCLOPHOSPHAMIDE [Suspect]
     Dosage: 1140MG TAKEN ON 12-JUN-2007 (INITIAL DOSE)
     Route: 065
     Dates: start: 20070705
  2. DOXORUBICIN HCL [Suspect]
     Dosage: 114MG TAKEN ON 12-JUN-2007 (INITIAL DOSE)
     Route: 065
     Dates: start: 20070705
  3. VITAMIN B-12 [Concomitant]
     Dates: start: 20070525, end: 20070525
  4. FOLIC ACID [Concomitant]
     Dates: start: 20070525, end: 20070612
  5. DEXAMETHASONE TAB [Concomitant]
     Dates: start: 20070612, end: 20071219
  6. GRANISETRON HCL [Concomitant]
     Dates: start: 20070612, end: 20071218
  7. APREPITANT [Concomitant]
     Dates: start: 20070612, end: 20070915
  8. CIPROFLOXACIN HCL [Concomitant]
     Dates: start: 20070718, end: 20070730

REACTIONS (5)
  - CONJUNCTIVITIS [None]
  - FATIGUE [None]
  - HYPOKALAEMIA [None]
  - PYREXIA [None]
  - SINUSITIS [None]
